FAERS Safety Report 6698763-8 (Version None)
Quarter: 2010Q2

REPORT INFORMATION
  Report Type: 
  Country: None (occurrence: None)
  Receive Date: 20100427
  Receipt Date: 20100415
  Transmission Date: 20101027
  Serious: Yes (Hospitalization)
  Sender: FDA-Public Use
  Company Number: PHHY2010MX23959

PATIENT
  Sex: Female

DRUGS (1)
  1. ZOMETA [Suspect]
     Dosage: 4 MG/100 ML EVERY MONTH
     Route: 042
     Dates: start: 20100409

REACTIONS (2)
  - BONE EROSION [None]
  - MULTIPLE FRACTURES [None]
